FAERS Safety Report 10724011 (Version 1)
Quarter: 2015Q1

REPORT INFORMATION
  Report Type: Spontaneous
  Country: US (occurrence: None)
  Receive Date: 20150116
  Receipt Date: 20150116
  Transmission Date: 20150721
  Serious: Yes (Life-Threatening, Hospitalization)
  Sender: FDA-Public Use
  Company Number: None

PATIENT
  Age: 45 Year
  Sex: Female
  Weight: 51.26 kg

DRUGS (2)
  1. NORMAL SALINE [Suspect]
     Active Substance: SODIUM CHLORIDE
     Indication: SUPPLEMENTATION THERAPY
     Dosage: INTO A VEIN
     Route: 042
     Dates: start: 20150105, end: 20150105
  2. STERILE WATER [Suspect]
     Active Substance: WATER
     Indication: SUPPLEMENTATION THERAPY

REACTIONS (8)
  - Back pain [None]
  - Bradycardia [None]
  - Diarrhoea [None]
  - Vomiting [None]
  - Sepsis [None]
  - Haemoglobin decreased [None]
  - Hypotension [None]
  - Disseminated intravascular coagulation [None]

NARRATIVE: CASE EVENT DATE: 20150105
